FAERS Safety Report 4424205-9 (Version None)
Quarter: 2004Q3

REPORT INFORMATION
  Report Type: 
  Country: None (occurrence: None)
  Receive Date: 20040812
  Receipt Date: 20040809
  Transmission Date: 20050211
  Serious: Yes (Hospitalization)
  Sender: FDA-Public Use
  Company Number: 200412969FR

PATIENT
  Age: 35 Year
  Sex: Male
  Weight: 93 kg

DRUGS (3)
  1. CLAFORAN [Suspect]
     Route: 042
     Dates: start: 20040625, end: 20040628
  2. ZOVIRAX [Suspect]
     Route: 042
     Dates: start: 20040625, end: 20040701
  3. VANCOMYCIN [Suspect]
     Route: 042
     Dates: start: 20040625, end: 20040628

REACTIONS (9)
  - CHORIOMENINGITIS LYMPHOCYTIC [None]
  - CONFUSIONAL STATE [None]
  - DRUG INTERACTION [None]
  - IATROGENIC INJURY [None]
  - MENINGEAL DISORDER [None]
  - NECK PAIN [None]
  - PYREXIA [None]
  - RENAL FAILURE ACUTE [None]
  - VIRAL INFECTION [None]
